FAERS Safety Report 10204837 (Version 2)
Quarter: 2014Q2

REPORT INFORMATION
  Report Type: Spontaneous
  Country: GR (occurrence: GR)
  Receive Date: 20140529
  Receipt Date: 20140605
  Transmission Date: 20141212
  Serious: Yes (Hospitalization, Other)
  Sender: FDA-Public Use
  Company Number: GR-ASTRAZENECA-2014SE35928

PATIENT
  Age: 75 Year
  Sex: Male
  Weight: 76 kg

DRUGS (9)
  1. BRILIQUE [Suspect]
     Indication: ACUTE MYOCARDIAL INFARCTION
     Route: 048
     Dates: start: 20140508, end: 20140517
  2. METOPROLOL [Suspect]
     Dosage: 1/4 PLUS 2
     Route: 065
     Dates: start: 20140508, end: 20140517
  3. ASPIRINE [Suspect]
     Route: 065
     Dates: start: 20140508
  4. HIDROXYURIA [Suspect]
     Route: 065
     Dates: start: 20140508
  5. PPIS [Concomitant]
     Indication: GASTRITIS PROPHYLAXIS
     Route: 048
  6. SALOSPIR [Concomitant]
     Indication: ACUTE CORONARY SYNDROME
     Route: 048
  7. STATIN [Concomitant]
     Route: 048
  8. ANTI-HYPERTENSIVE TREATMENT [Concomitant]
     Indication: HYPERTENSION
     Route: 048
  9. HEPARINE [Concomitant]
     Dates: start: 20140508, end: 20140517

REACTIONS (3)
  - Renal failure acute [Recovering/Resolving]
  - Haemorrhage [Recovered/Resolved]
  - Dialysis [None]
